FAERS Safety Report 18551470 (Version 1)
Quarter: 2020Q4

REPORT INFORMATION
  Report Type: Spontaneous
  Country: FI (occurrence: FI)
  Receive Date: 20201126
  Receipt Date: 20201126
  Transmission Date: 20210114
  Serious: Yes (Disabling)
  Sender: FDA-Public Use
  Company Number: NVSC2020FI309868

PATIENT
  Age: 28 Year
  Sex: Female

DRUGS (1)
  1. ASACOL [Suspect]
     Active Substance: MESALAMINE
     Indication: CROHN^S DISEASE
     Dosage: 3200 MG, QD
     Route: 048
     Dates: start: 20200914, end: 20201015

REACTIONS (3)
  - Gastrointestinal haemorrhage [Recovering/Resolving]
  - Faecal calprotectin increased [Recovering/Resolving]
  - Gingival bleeding [Recovering/Resolving]

NARRATIVE: CASE EVENT DATE: 20200915
